FAERS Safety Report 14344241 (Version 1)
Quarter: 2018Q1

REPORT INFORMATION
  Report Type: Spontaneous
  Country: US (occurrence: US)
  Receive Date: 20180102
  Receipt Date: 20180102
  Transmission Date: 20180509
  Serious: Yes (Death, Other)
  Sender: FDA-Public Use
  Company Number: US-009507513-1712USA014612

PATIENT
  Age: 28 Year
  Sex: Female

DRUGS (7)
  1. PROPRANOLOL [Suspect]
     Active Substance: PROPRANOLOL HYDROCHLORIDE
  2. CLONAZEPAM. [Suspect]
     Active Substance: CLONAZEPAM
  3. CYCLOBENZAPRINE HYDROCHLORIDE. [Suspect]
     Active Substance: CYCLOBENZAPRINE HYDROCHLORIDE
  4. LAMOTRIGINE. [Suspect]
     Active Substance: LAMOTRIGINE
  5. ESCITALOPRAM [Suspect]
     Active Substance: ESCITALOPRAM OXALATE
  6. REMERON [Suspect]
     Active Substance: MIRTAZAPINE
     Route: 048
  7. BUSPIRONE HYDROCHLORIDE. [Suspect]
     Active Substance: BUSPIRONE HYDROCHLORIDE

REACTIONS (1)
  - Death [Fatal]
